FAERS Safety Report 7526299-0 (Version None)
Quarter: 2011Q2

REPORT INFORMATION
  Report Type: 
  Country: None (occurrence: None)
  Receive Date: 20110606
  Receipt Date: 20110120
  Transmission Date: 20111010
  Serious: Yes (Other)
  Sender: FDA-Public Use
  Company Number: US-BAYER-201039185NA

PATIENT
  Age: 27 Year
  Sex: Female
  Weight: 98 kg

DRUGS (10)
  1. YASMIN [Suspect]
     Dosage: UNK
     Dates: start: 20071101, end: 20071121
  2. YASMIN [Suspect]
     Indication: CONTRACEPTION
     Dosage: UNK UNK, UNK
     Route: 048
     Dates: start: 20040901
  3. YASMIN [Suspect]
     Dosage: UNK
     Dates: end: 20080715
  4. DROSPIRENONE AND ETHINYL ESTRADIOL [Suspect]
     Dosage: UNK UNK, QD
     Route: 048
     Dates: start: 20080705, end: 20080725
  5. YASMIN [Suspect]
     Dosage: UNK
     Dates: end: 20090101
  6. DROSPIRENONE AND ETHINYL ESTRADIOL [Suspect]
     Dosage: UNK
     Dates: end: 20090101
  7. DIGESTIVE ENZYMES [Concomitant]
     Dosage: UNK
     Dates: start: 20080701
  8. DROSPIRENONE AND ETHINYL ESTRADIOL [Suspect]
     Indication: CONTRACEPTION
     Dosage: UNK
     Dates: start: 20040901
  9. PRILOSEC [Concomitant]
  10. PANTOPRAZOLE [Concomitant]
     Dosage: UNK, DURATION 4 WEEKS, NO REFILL
     Dates: start: 20071121

REACTIONS (6)
  - MENTAL DISORDER [None]
  - ABDOMINAL PAIN [None]
  - INJURY [None]
  - CHOLECYSTITIS CHRONIC [None]
  - CHOLELITHIASIS [None]
  - GALLBLADDER CHOLESTEROLOSIS [None]
